FAERS Safety Report 5231351-9 (Version None)
Quarter: 2007Q1

REPORT INFORMATION
  Report Type: 
  Country: None (occurrence: None)
  Receive Date: 20070205
  Receipt Date: 20070205
  Transmission Date: 20070707
  Serious: No
  Sender: FDA-Public Use
  Company Number: None

PATIENT

DRUGS (1)
  1. MIDAZOLAM HCL [Suspect]
     Dosage: IV
     Route: 042
     Dates: start: 20060101, end: 20061231

REACTIONS (1)
  - DRUG EFFECT DECREASED [None]
